FAERS Safety Report 8810310 (Version 1)
Quarter: 2012Q4

REPORT INFORMATION
  Report Type: 
  Country: MY (occurrence: MY)
  Receive Date: 20120926
  Receipt Date: 20120926
  Transmission Date: 20130627
  Serious: Yes (Death, Other)
  Sender: FDA-Public Use
  Company Number: PHHO2005MY01770

PATIENT
  Sex: Male

DRUGS (1)
  1. GLIVEC [Suspect]
     Dosage: 400 mg, UNK
     Route: 048
     Dates: start: 20040603

REACTIONS (2)
  - Blast crisis in myelogenous leukaemia [Fatal]
  - Haemorrhage [Fatal]
